FAERS Safety Report 13358248 (Version 1)
Quarter: 2017Q1

REPORT INFORMATION
  Report Type: Spontaneous
  Country: US (occurrence: US)
  Receive Date: 20170321
  Receipt Date: 20170321
  Transmission Date: 20170429
  Serious: Yes (Other)
  Sender: FDA-Public Use
  Company Number: None

PATIENT
  Age: 69 Year
  Sex: Female
  Weight: 85.05 kg

DRUGS (10)
  1. VITAMIN D3 [Concomitant]
     Active Substance: CHOLECALCIFEROL
  2. VITB12 [Concomitant]
  3. PROLIA [Concomitant]
     Active Substance: DENOSUMAB
  4. CHOLESTYRAMINE. [Concomitant]
     Active Substance: CHOLESTYRAMINE
  5. CARVEDILOL. [Concomitant]
     Active Substance: CARVEDILOL
  6. BUPROPION SR [Suspect]
     Active Substance: BUPROPION HYDROCHLORIDE
     Indication: DEPRESSION
     Route: 048
  7. ATORVASTATIN [Concomitant]
     Active Substance: ATORVASTATIN
  8. NEURONTIN [Concomitant]
     Active Substance: GABAPENTIN
  9. CALCIUM [Concomitant]
     Active Substance: CALCIUM
  10. XANAX [Concomitant]
     Active Substance: ALPRAZOLAM

REACTIONS (2)
  - Abdominal discomfort [None]
  - Product odour abnormal [None]

NARRATIVE: CASE EVENT DATE: 20161207
